FAERS Safety Report 6692816-6 (Version None)
Quarter: 2010Q2

REPORT INFORMATION
  Report Type: 
  Country: None (occurrence: None)
  Receive Date: 20100422
  Receipt Date: 20100419
  Transmission Date: 20101027
  Serious: Yes (Hospitalization)
  Sender: FDA-Public Use
  Company Number: DE-JNJFOC-20100203809

PATIENT
  Sex: Male

DRUGS (2)
  1. REOPRO [Suspect]
     Indication: ELECTROCARDIOGRAM ST SEGMENT ELEVATION
     Route: 022
  2. REOPRO [Suspect]
     Dosage: 18-DEC-2009 START 19:11 TO 19-DEC-2009 END 07:10
     Route: 042

REACTIONS (2)
  - DRESSLER'S SYNDROME [None]
  - INCORRECT ROUTE OF DRUG ADMINISTRATION [None]
